FAERS Safety Report 7802475-4 (Version None)
Quarter: 2011Q4

REPORT INFORMATION
  Report Type: 
  Country: None (occurrence: None)
  Receive Date: 20111007
  Receipt Date: 20110928
  Transmission Date: 20120403
  Serious: Yes (Death, Congenital Anomaly)
  Sender: FDA-Public Use
  Company Number: US-GLAXOSMITHKLINE-A0947266B

PATIENT
  Sex: Male

DRUGS (2)
  1. PAXIL [Suspect]
     Indication: PANIC DISORDER
     Route: 064
     Dates: start: 20000101
  2. NO CONCURRENT MEDICATION [Concomitant]
     Route: 064

REACTIONS (3)
  - HYPOPLASTIC LEFT HEART SYNDROME [None]
  - DEATH [None]
  - MATERNAL EXPOSURE DURING PREGNANCY [None]
